FAERS Safety Report 4413571-6 (Version None)
Quarter: 2004Q2

REPORT INFORMATION
  Report Type: 
  Country: None (occurrence: None)
  Receive Date: 20040630
  Receipt Date: 20040310
  Transmission Date: 20050107
  Serious: No
  Sender: FDA-Public Use
  Company Number: 04P-163-0252961-00

PATIENT
  Age: 41 Year
  Sex: Female
  Weight: 65.7716 kg

DRUGS (8)
  1. HUMIRA [Suspect]
     Indication: RHEUMATOID ARTHRITIS
     Dosage: 40 MG, 1 IN 2 WK, SUBCUTANEOUS
     Route: 058
     Dates: start: 20040304
  2. METHOTREXATE SODIUM [Concomitant]
  3. BUCINDOLOL HYDROCHLORIDE [Concomitant]
  4. VICODIN [Concomitant]
  5. PREDNISONE TAB [Concomitant]
  6. LEVOTHYROXINE SODIUM [Concomitant]
  7. BIRTH CONTROL PILL [Concomitant]
  8. ALBUTEROL SULFATE [Concomitant]

REACTIONS (1)
  - FATIGUE [None]
